FAERS Safety Report 5239406-X (Version None)
Quarter: 2007Q1

REPORT INFORMATION
  Report Type: 
  Country: None (occurrence: None)
  Receive Date: 20070214
  Receipt Date: 20070214
  Transmission Date: 20070707
  Serious: Yes (Hospitalization)
  Sender: FDA-Public Use
  Company Number: None

PATIENT
  Age: 57 Year
  Sex: Female
  Weight: 59.4212 kg

DRUGS (3)
  1. CARBOPLATIN [Suspect]
     Indication: LARYNGEAL CANCER
     Dosage: 400 MG ONCE Q 4 WKS IV
     Route: 042
     Dates: start: 20070105
  2. TAXOTERE [Suspect]
     Indication: LARYNGEAL CANCER
     Dosage: 50 MG WEEKLY FOR 3 WEEKS IV
     Route: 042
     Dates: start: 20070105
  3. IFOSFAMIDE [Suspect]
     Indication: LARYNGEAL CANCER
     Dosage: 1,650 MG WEEKLY FOR 3 WKS IV
     Route: 042
     Dates: start: 20070112

REACTIONS (9)
  - AGITATION [None]
  - DEHYDRATION [None]
  - DYSPNOEA [None]
  - HAEMOPTYSIS [None]
  - IATROGENIC INJURY [None]
  - LEUKOPENIA [None]
  - NEUTROPENIA [None]
  - PYREXIA [None]
  - THROMBOCYTOPENIA [None]
